FAERS Safety Report 19392668 (Version 1)
Quarter: 2021Q2

REPORT INFORMATION
  Report Type: Spontaneous
  Country: US (occurrence: US)
  Receive Date: 20210608
  Receipt Date: 20210608
  Transmission Date: 20210717
  Serious: No
  Sender: FDA-Public Use
  Company Number: None

PATIENT
  Age: 62 Year
  Sex: Female
  Weight: 90.72 kg

DRUGS (1)
  1. XELJANZ XR [Suspect]
     Active Substance: TOFACITINIB CITRATE
     Indication: RHEUMATOID ARTHRITIS
     Dosage: ? OTHER DOSE:TAKE 1 TABLET;AS DIRECTED?
     Route: 048
     Dates: start: 202004

REACTIONS (3)
  - Product use issue [None]
  - Localised infection [None]
  - Therapy interrupted [None]
